FAERS Safety Report 14172064 (Version 1)
Quarter: 2017Q4

REPORT INFORMATION
  Report Type: Report from Study
  Country: None (occurrence: IT)
  Receive Date: 20171108
  Receipt Date: 20171108
  Transmission Date: 20180321
  Serious: Yes (Death)
  Sender: FDA-Public Use
  Company Number: IT-ABBVIE-17K-083-2157055-00

PATIENT
  Age: 78 Year
  Sex: Male

DRUGS (1)
  1. DUODOPA [Suspect]
     Active Substance: CARBIDOPA\LEVODOPA
     Indication: PARKINSON^S DISEASE
     Dosage: MD 10+3?CR 3.0?ED 3.0
     Route: 050
     Dates: start: 20150130, end: 20171107

REACTIONS (2)
  - General physical health deterioration [Fatal]
  - Respiratory arrest [Fatal]

NARRATIVE: CASE EVENT DATE: 201711
